FAERS Safety Report 8924916 (Version 1)
Quarter: 2012Q4

REPORT INFORMATION
  Report Type: 
  Country: AU (occurrence: AU)
  Receive Date: 20121126
  Receipt Date: 20121126
  Transmission Date: 20130627
  Serious: Yes (Death, Other)
  Sender: FDA-Public Use
  Company Number: AU-RANBAXY-2012R1-62438

PATIENT
  Age: 69 Year
  Sex: Male

DRUGS (1)
  1. MINOCYCLINE [Suspect]
     Indication: PNEUMONIA
     Dosage: 100 mg, twice daily
     Route: 065

REACTIONS (2)
  - Bone hyperpigmentation [Unknown]
  - Thyroid disorder [Unknown]
